FAERS Safety Report 8103474-8 (Version None)
Quarter: 2012Q1

REPORT INFORMATION
  Report Type: 
  Country: None (occurrence: None)
  Receive Date: 20120201
  Receipt Date: 20120125
  Transmission Date: 20120608
  Serious: Yes (Hospitalization)
  Sender: FDA-Public Use
  Company Number: GB-ROCHE-GNE309424

PATIENT
  Sex: Female

DRUGS (5)
  1. LUCENTIS [Suspect]
     Indication: PRODUCT USED FOR UNKNOWN INDICATION
     Dosage: 0.5 MG, UNK
     Route: 050
     Dates: start: 20090604
  2. LUCENTIS [Suspect]
     Dosage: 0.5 MG, UNK
     Route: 050
  3. LUCENTIS [Suspect]
     Dosage: 0.5 MG, UNK
     Route: 050
  4. LUCENTIS [Suspect]
     Dosage: 0.5 MG, UNK
     Route: 050
  5. LUCENTIS [Suspect]
     Dosage: 0.5 MG, UNK
     Route: 050
     Dates: start: 20100628

REACTIONS (1)
  - THROMBOSIS [None]
